FAERS Safety Report 9868681 (Version 3)
Quarter: 2014Q2

REPORT INFORMATION
  Report Type: Spontaneous
  Country: US (occurrence: US)
  Receive Date: 20140204
  Receipt Date: 20140416
  Transmission Date: 20141212
  Serious: Yes (Other)
  Sender: FDA-Public Use
  Company Number: US-ABBVIE-14P-163-1196653-00

PATIENT
  Age: 32 Year
  Sex: Female
  Weight: 88.53 kg

DRUGS (11)
  1. LUPRON DEPOT [Suspect]
     Indication: ENDOMETRIOSIS
     Dates: start: 199911, end: 200005
  2. LUPRON DEPOT [Suspect]
     Dates: start: 2003, end: 2003
  3. LUPRON DEPOT [Suspect]
     Dates: start: 200410, end: 200410
  4. SYNTHROID [Concomitant]
     Indication: IN VITRO FERTILISATION
     Dates: start: 2005, end: 2005
  5. SYNTHROID [Concomitant]
     Indication: HYPOTHYROIDISM
     Dates: start: 20070508, end: 20090810
  6. SYNTHROID [Concomitant]
     Dates: start: 20090810
  7. SYNTHROID [Concomitant]
  8. SYNTHROID [Concomitant]
  9. ORAL CONTRACEPTIVE NOS [Concomitant]
     Indication: IN VITRO FERTILISATION
     Dates: start: 2005, end: 2005
  10. CLOMID [Concomitant]
     Indication: INFERTILITY
  11. ALLEGRA [Concomitant]
     Indication: HYPERSENSITIVITY

REACTIONS (2)
  - Abortion spontaneous [Unknown]
  - Placental disorder [Unknown]
